FAERS Safety Report 16125100 (Version 1)
Quarter: 2019Q1

REPORT INFORMATION
  Report Type: Spontaneous
  Country: CA (occurrence: CA)
  Receive Date: 20190327
  Receipt Date: 20190327
  Transmission Date: 20190418
  Serious: Yes (Other)
  Sender: FDA-Public Use
  Company Number: CA-ALLERGAN-1913608US

PATIENT
  Sex: Female

DRUGS (2)
  1. ESCITALOPRAM OXALATE - BP [Suspect]
     Active Substance: ESCITALOPRAM OXALATE
     Indication: PRODUCT USED FOR UNKNOWN INDICATION
     Dosage: 5 MG, Q12H
     Route: 048
     Dates: start: 2017
  2. CALCIUM [Concomitant]
     Active Substance: CALCIUM
     Route: 048

REACTIONS (5)
  - Somnolence [Unknown]
  - Loss of consciousness [Unknown]
  - Neurological symptom [Not Recovered/Not Resolved]
  - Parathyroid disorder [Unknown]
  - Product use issue [Unknown]
